FAERS Safety Report 25677555 (Version 1)
Quarter: 2025Q3

REPORT INFORMATION
  Report Type: Spontaneous
  Country: EU (occurrence: EU)
  Receive Date: 20250813
  Receipt Date: 20250813
  Transmission Date: 20251020
  Serious: Yes (Other)
  Sender: Atnahs Healthcare
  Company Number: EU-ATNAHS-2025-PMNV-FR000430

PATIENT

DRUGS (5)
  1. VALIUM [Suspect]
     Active Substance: DIAZEPAM
     Indication: Anxiety
     Dosage: 40 MG, Q6HR, 40 MG 4 TABLET PER DAY FOR 2YEARS
  2. VALIUM [Suspect]
     Active Substance: DIAZEPAM
     Indication: Depression
  3. VALIUM [Suspect]
     Active Substance: DIAZEPAM
  4. PAROXETINE HYDROCHLORIDE [Suspect]
     Active Substance: PAROXETINE HYDROCHLORIDE
     Indication: Antidepressant therapy
     Dates: start: 2022
  5. ZOLOFT [Suspect]
     Active Substance: SERTRALINE HYDROCHLORIDE
     Indication: Antidepressant therapy
     Dates: start: 2022

REACTIONS (22)
  - Drug dependence [Unknown]
  - Paraesthesia [Not Recovered/Not Resolved]
  - Hypoaesthesia [Not Recovered/Not Resolved]
  - Memory impairment [Not Recovered/Not Resolved]
  - Palpitations [Not Recovered/Not Resolved]
  - Nightmare [Not Recovered/Not Resolved]
  - Tremor [Not Recovered/Not Resolved]
  - Vertigo [Not Recovered/Not Resolved]
  - Headache [Not Recovered/Not Resolved]
  - Coordination abnormal [Not Recovered/Not Resolved]
  - Fall [Not Recovered/Not Resolved]
  - Nausea [Not Recovered/Not Resolved]
  - Dry mouth [Not Recovered/Not Resolved]
  - Saliva altered [Not Recovered/Not Resolved]
  - Ageusia [Not Recovered/Not Resolved]
  - Vision blurred [Not Recovered/Not Resolved]
  - Hypotension [Not Recovered/Not Resolved]
  - Heart rate irregular [Not Recovered/Not Resolved]
  - Somnolence [Not Recovered/Not Resolved]
  - Weight decreased [Not Recovered/Not Resolved]
  - Drug withdrawal syndrome [Not Recovered/Not Resolved]
  - Off label use [Not Recovered/Not Resolved]
